FAERS Safety Report 23880841 (Version 1)
Quarter: 2024Q2

REPORT INFORMATION
  Report Type: Report from Study
  Country: PH (occurrence: PH)
  Receive Date: 20240521
  Receipt Date: 20240521
  Transmission Date: 20240715
  Serious: Yes (Other)
  Sender: FDA-Public Use
  Company Number: PH-OTSUKA-2024_010119

PATIENT
  Sex: Male

DRUGS (4)
  1. TOLVAPTAN [Suspect]
     Active Substance: TOLVAPTAN
     Indication: Product used for unknown indication
     Dosage: 1 DF, BIW (SAMSCA 15 MG 1 TABLET TWICE A WEEK (WEDNESDAY AND SATURDAY))
     Route: 048
     Dates: start: 2023, end: 202404
  2. EFFICIN [Concomitant]
     Indication: Product used for unknown indication
     Dosage: UNK
     Route: 065
  3. SODIUM BICARBONATE [Concomitant]
     Active Substance: SODIUM BICARBONATE
     Indication: Product used for unknown indication
     Dosage: UNK
     Route: 065
  4. FOLIC ACID [Concomitant]
     Active Substance: FOLIC ACID
     Indication: Product used for unknown indication
     Dosage: UNK
     Route: 065

REACTIONS (3)
  - Dry skin [Recovering/Resolving]
  - Dehydration [Recovering/Resolving]
  - Inappropriate schedule of product administration [Unknown]
